FAERS Safety Report 8439144 (Version 2)
Quarter: 2013Q2

REPORT INFORMATION
  Report Type: Spontaneous
  Country: US (occurrence: None)
  Receive Date: 20120104
  Receipt Date: 20120508
  Transmission Date: 20140414
  Serious: Yes (Other)
  Sender: FDA-Public Use
  Company Number: 2011HGS-002730

PATIENT
  Age: 63 Year
  Sex: Female
  Weight: 88.91 kg

DRUGS (10)
  1. BENLYSTA [Suspect]
     Indication: SYSTEMIC LUPUS ERYTHEMATOSUS
     Dosage: 10 MG/KG, 1 IN 28 D, INTRAVENOUS DRIP
     Route: 041
     Dates: start: 20110727
  2. CELLCEPT (MYCOPHENOLATE MOFETIL) (MYCOPHENOLATE MOFETIL) [Concomitant]
  3. SAVELLA [Concomitant]
  4. PLAQUENIL (HYDROXYCHLOROQUINE SULFATE) (HYDROXYCHLOROQUINE SULFATE) [Concomitant]
  5. PILOCARPINE (PILOCARPINE) (PILOCARPINE) [Concomitant]
  6. DILANTIN [Concomitant]
  7. WARFARIN SODIUM [Concomitant]
  8. AMITRIPTYLINE (AMITRIPTYLINE) (AMITRIPTYLINE) [Concomitant]
  9. BONIVA (IBANDRONATE SODIUM) [Concomitant]
  10. CALCITROL (CALCITROL /00508501/) (ERGOCALCIFEROL, RETINOL, CALCIUM CARBONATE) [Concomitant]

REACTIONS (2)
  - HEADACHE [None]
  - NAUSEA [None]
